FAERS Safety Report 4621797-1 (Version None)
Quarter: 2005Q1

REPORT INFORMATION
  Report Type: 
  Country: None (occurrence: None)
  Receive Date: 20050329
  Receipt Date: 20050318
  Transmission Date: 20050727
  Serious: Yes (Hospitalization)
  Sender: FDA-Public Use
  Company Number: US-ROCHE-399090

PATIENT
  Age: 44 Year
  Sex: Female

DRUGS (2)
  1. CAPECITABINE [Suspect]
     Dosage: FOR THE FIRST 2 WEEKS IN EACH 21 DAY CYCLE.
     Route: 048
     Dates: start: 20050214
  2. LAPATINIB [Suspect]
     Route: 048
     Dates: start: 20050214

REACTIONS (3)
  - DEHYDRATION [None]
  - HYPOKALAEMIA [None]
  - HYPONATRAEMIA [None]
